FAERS Safety Report 17857144 (Version 1)
Quarter: 2020Q2

REPORT INFORMATION
  Report Type: Spontaneous
  Country: US (occurrence: US)
  Receive Date: 20200603
  Receipt Date: 20200603
  Transmission Date: 20200714
  Serious: Yes (Death, Other)
  Sender: FDA-Public Use
  Company Number: US-GILEAD-2020-0469659

PATIENT
  Age: 71 Year
  Sex: Male
  Weight: 116.1 kg

DRUGS (10)
  1. CEFTRIAXONE. [Concomitant]
     Active Substance: CEFTRIAXONE
  2. HEPARIN [Concomitant]
     Active Substance: HEPARIN SODIUM
  3. FAMOTIDINE. [Concomitant]
     Active Substance: FAMOTIDINE
  4. MIDAZOLAM. [Concomitant]
     Active Substance: MIDAZOLAM
  5. AZITHROMYCIN ANHYDROUS. [Concomitant]
     Active Substance: AZITHROMYCIN ANHYDROUS
  6. NOREPINEPHRINE. [Concomitant]
     Active Substance: NOREPINEPHRINE
  7. PROPOFOL. [Concomitant]
     Active Substance: PROPOFOL
  8. INSULIN [Concomitant]
     Active Substance: INSULIN NOS
  9. REMDESIVIR. [Suspect]
     Active Substance: REMDESIVIR
     Indication: COVID-19
     Dosage: 200 MILLIGRAM PER MILLILITRE, ONCE
     Route: 042
     Dates: start: 20200528, end: 20200528
  10. NIMBEX [Concomitant]
     Active Substance: CISATRACURIUM BESYLATE

REACTIONS (3)
  - Acute respiratory distress syndrome [Unknown]
  - Cardiac arrest [Fatal]
  - Shock [Unknown]

NARRATIVE: CASE EVENT DATE: 20200529
